FAERS Safety Report 9257361 (Version 19)
Quarter: 2014Q3

REPORT INFORMATION
  Report Type: Report from Study
  Country: CA (occurrence: CA)
  Receive Date: 20130426
  Receipt Date: 20140908
  Transmission Date: 20150326
  Serious: Yes (Other)
  Sender: FDA-Public Use
  Company Number: CA-ROCHE-682209

PATIENT
  Age: 40 Year
  Sex: Female
  Weight: 89 kg

DRUGS (17)
  1. PREDNISONE. [Concomitant]
     Active Substance: PREDNISONE
     Indication: RHEUMATOID ARTHRITIS
     Route: 048
     Dates: start: 2009
  2. FOLINIC ACID [Concomitant]
     Active Substance: LEUCOVORIN
     Indication: RHEUMATOID ARTHRITIS
     Dosage: FREQUENCY: WEEKLY
     Route: 048
     Dates: start: 20090721
  3. PLAQUENIL [Concomitant]
     Active Substance: HYDROXYCHLOROQUINE SULFATE
     Indication: RHEUMATOID ARTHRITIS
     Route: 048
  4. METHOTREXATE [Concomitant]
     Active Substance: METHOTREXATE
     Dosage: 6-8 PILLS A WEEK
     Route: 048
  5. METHOTREXATE [Concomitant]
     Active Substance: METHOTREXATE
     Indication: RHEUMATOID ARTHRITIS
     Route: 058
     Dates: start: 20090721
  6. RITUXAN [Suspect]
     Active Substance: RITUXIMAB
     Indication: RHEUMATOID ARTHRITIS
     Dosage: FREQUENCY: ONCE
     Route: 042
     Dates: start: 20091112, end: 20091125
  7. ACTEMRA [Suspect]
     Active Substance: TOCILIZUMAB
     Indication: RHEUMATOID ARTHRITIS
     Route: 042
     Dates: start: 20120926, end: 20121120
  8. NAPROXEN. [Suspect]
     Active Substance: NAPROXEN
     Indication: PRODUCT USED FOR UNKNOWN INDICATION
     Route: 065
  9. ZYRTEC [Concomitant]
     Active Substance: CETIRIZINE HYDROCHLORIDE
     Dosage: PRN
     Route: 065
  10. PANTOLOC [Concomitant]
     Active Substance: PANTOPRAZOLE SODIUM
  11. VENTOLIN [Concomitant]
     Active Substance: ALBUTEROL SULFATE
     Dosage: AS REQUIRED
     Route: 065
  12. CALCITE D [Concomitant]
     Active Substance: CALCIUM CARBONATE
  13. ACTEMRA [Suspect]
     Active Substance: TOCILIZUMAB
     Route: 042
     Dates: start: 20121121
  14. APO-HYDRO [Suspect]
     Active Substance: HYDROCHLOROTHIAZIDE
     Indication: BLOOD PRESSURE INCREASED
     Route: 048
  15. ACTONEL [Concomitant]
     Active Substance: RISEDRONATE SODIUM
  16. LEUCOVORIN [Concomitant]
     Active Substance: LEUCOVORIN
     Dosage: AS NEEDED
     Route: 065
  17. ADVIL [Concomitant]
     Active Substance: IBUPROFEN
     Route: 065

REACTIONS (23)
  - Heart rate increased [Unknown]
  - Dyspnoea [Recovered/Resolved]
  - Headache [Not Recovered/Not Resolved]
  - Influenza like illness [Recovered/Resolved]
  - Poor venous access [Not Recovered/Not Resolved]
  - Blood pressure increased [Recovering/Resolving]
  - Drug ineffective [Unknown]
  - Fall [Unknown]
  - Wound [Not Recovered/Not Resolved]
  - Oropharyngeal pain [Not Recovered/Not Resolved]
  - Drug hypersensitivity [Recovered/Resolved]
  - Asthma [Recovering/Resolving]
  - Hepatic pain [Recovering/Resolving]
  - Nasopharyngitis [Recovered/Resolved]
  - Rheumatoid arthritis [Not Recovered/Not Resolved]
  - Ear pain [Not Recovered/Not Resolved]
  - Weight increased [Not Recovered/Not Resolved]
  - Drug ineffective [Not Recovered/Not Resolved]
  - Diarrhoea [Not Recovered/Not Resolved]
  - Nasal congestion [Not Recovered/Not Resolved]
  - Paraesthesia [Not Recovered/Not Resolved]
  - Abdominal pain [Recovering/Resolving]
  - Arthralgia [Unknown]

NARRATIVE: CASE EVENT DATE: 200912
